FAERS Safety Report 19475982 (Version 1)
Quarter: 2021Q2

REPORT INFORMATION
  Report Type: Spontaneous
  Country: US (occurrence: US)
  Receive Date: 20210630
  Receipt Date: 20210630
  Transmission Date: 20210717
  Serious: Yes (Other)
  Sender: FDA-Public Use
  Company Number: US-HIKMA PHARMACEUTICALS USA INC.-US-H14001-21-03049

PATIENT
  Age: 88 Year
  Sex: Male

DRUGS (3)
  1. PROPARACAINE [Suspect]
     Active Substance: PROPARACAINE
     Indication: NEOVASCULAR AGE-RELATED MACULAR DEGENERATION
     Dosage: UNKNOWN
     Route: 061
  2. POVIDONE?IODINE. [Suspect]
     Active Substance: POVIDONE-IODINE
     Indication: NEOVASCULAR AGE-RELATED MACULAR DEGENERATION
     Dosage: UNKNOWN
     Route: 057
  3. LIDOCAINE. [Suspect]
     Active Substance: LIDOCAINE
     Indication: NEOVASCULAR AGE-RELATED MACULAR DEGENERATION
     Dosage: UNKNOWN
     Route: 065

REACTIONS (1)
  - Endophthalmitis [Unknown]
